FAERS Safety Report 21104481 (Version 1)
Quarter: 2022Q3

REPORT INFORMATION
  Report Type: Spontaneous
  Country: US (occurrence: US)
  Receive Date: 20220720
  Receipt Date: 20220720
  Transmission Date: 20221027
  Serious: No
  Sender: FDA-Public Use
  Company Number: US-AMNEAL PHARMACEUTICALS-2022-AMRX-01470

PATIENT
  Age: 71 Year
  Sex: Female
  Weight: 107 kg

DRUGS (1)
  1. ESTRADIOL [Suspect]
     Active Substance: ESTRADIOL
     Indication: Product used for unknown indication
     Dosage: 10MG, VAGINAL INSERTS
     Route: 067

REACTIONS (5)
  - Device material issue [Recovered/Resolved]
  - Haemorrhage [Recovered/Resolved]
  - Pelvic discomfort [Recovered/Resolved]
  - Labia enlarged [Recovered/Resolved]
  - Skin laceration [Recovered/Resolved]

NARRATIVE: CASE EVENT DATE: 20220405
